FAERS Safety Report 9716858 (Version 1)
Quarter: 2013Q4

REPORT INFORMATION
  Report Type: Spontaneous
  Country: US (occurrence: US)
  Receive Date: 20131127
  Receipt Date: 20131127
  Transmission Date: 20140711
  Serious: Yes (Hospitalization, Other)
  Sender: FDA-Public Use
  Company Number: US-ABBVIE-13P-163-1171824-00

PATIENT
  Age: 59 Year
  Sex: Female
  Weight: 90.8 kg

DRUGS (12)
  1. HUMIRA [Suspect]
     Indication: PSORIASIS
     Dates: start: 2009
  2. ENTOCORT [Concomitant]
     Indication: COLITIS
  3. FAMOTIDINE [Concomitant]
     Indication: GASTRITIS
  4. GABAPENTIN [Concomitant]
     Indication: MOOD ALTERED
  5. GABAPENTIN [Concomitant]
     Indication: PAIN
  6. GABAPENTIN [Concomitant]
     Indication: INSOMNIA
  7. HYDROCODONE [Concomitant]
     Indication: BACK PAIN
     Dosage: AS NEEDED
  8. CALCIUM [Concomitant]
     Indication: BONE DENSITY ABNORMAL
  9. MULTIVITAMIN [Concomitant]
     Indication: VITAMIN SUPPLEMENTATION
  10. VITAMIN B COMPLEX [Concomitant]
     Indication: VITAMIN SUPPLEMENTATION
  11. VITAMIN C [Concomitant]
     Indication: VITAMIN SUPPLEMENTATION
  12. VITAMIN D NOS [Concomitant]
     Indication: BONE DENSITY ABNORMAL

REACTIONS (4)
  - Osteoarthritis [Unknown]
  - Basal cell carcinoma [Recovered/Resolved]
  - Vomiting [Recovered/Resolved]
  - Diarrhoea [Recovered/Resolved]
